FAERS Safety Report 9070783 (Version 1)
Quarter: 2013Q1

REPORT INFORMATION
  Report Type: Spontaneous
  Country: US (occurrence: US)
  Receive Date: 20130129
  Receipt Date: 20130129
  Transmission Date: 20140127
  Serious: No
  Sender: FDA-Public Use
  Company Number: US-TEVA-382179USA

PATIENT
  Sex: Female

DRUGS (2)
  1. TREANDA [Suspect]
  2. CYTOXAN [Suspect]

REACTIONS (4)
  - Eye irritation [Unknown]
  - Throat irritation [Unknown]
  - Dysgeusia [Unknown]
  - Accidental exposure to product [Unknown]
